FAERS Safety Report 6025981-4 (Version None)
Quarter: 2009Q1

REPORT INFORMATION
  Report Type: 
  Country: None (occurrence: None)
  Receive Date: 20090102
  Receipt Date: 20081202
  Transmission Date: 20090719
  Serious: No
  Sender: FDA-Public Use
  Company Number: US-BAYER-200833941NA

PATIENT
  Age: 71 Year
  Sex: Female

DRUGS (2)
  1. CLIMARA [Suspect]
     Indication: HORMONE REPLACEMENT THERAPY
     Route: 062
  2. CLIMARA [Suspect]
     Route: 062
     Dates: start: 20030101

REACTIONS (3)
  - ERYTHEMA [None]
  - HOT FLUSH [None]
  - PRODUCT QUALITY ISSUE [None]
